FAERS Safety Report 16601675 (Version 1)
Quarter: 2019Q3

REPORT INFORMATION
  Report Type: Spontaneous
  Country: US (occurrence: US)
  Receive Date: 20190719
  Receipt Date: 20190719
  Transmission Date: 20191004
  Serious: Yes (Other)
  Sender: FDA-Public Use
  Company Number: US-TEVA-2019-US-1078945

PATIENT
  Sex: Female

DRUGS (1)
  1. SUCRALFATE. [Suspect]
     Active Substance: SUCRALFATE
     Indication: GASTROOESOPHAGEAL REFLUX DISEASE
     Route: 065
     Dates: start: 20190624

REACTIONS (2)
  - Rectal haemorrhage [Unknown]
  - Coeliac disease [Unknown]

NARRATIVE: CASE EVENT DATE: 20190624
